FAERS Safety Report 21155299 (Version 3)
Quarter: 2022Q3

REPORT INFORMATION
  Report Type: Spontaneous
  Country: US (occurrence: US)
  Receive Date: 20220801
  Receipt Date: 20220825
  Transmission Date: 20221026
  Serious: Yes (Other)
  Sender: FDA-Public Use
  Company Number: US-ALIMERA SCIENCES LIMITED-US-A16013-22-000191

PATIENT
  Age: 59 Year
  Sex: Female

DRUGS (15)
  1. ILUVIEN [Suspect]
     Active Substance: FLUOCINOLONE ACETONIDE
     Indication: Diabetic retinal oedema
     Dosage: 0.25 MICROGRAM, QD - LEFT EYE
     Route: 031
     Dates: start: 20210322
  2. EYLEA [Suspect]
     Active Substance: AFLIBERCEPT
     Indication: Product used for unknown indication
     Dosage: UNKNOWN
     Route: 031
     Dates: start: 20210208
  3. EYLEA [Suspect]
     Active Substance: AFLIBERCEPT
     Dosage: UNKNOWN
     Route: 031
     Dates: start: 20210426
  4. EYLEA [Suspect]
     Active Substance: AFLIBERCEPT
     Dosage: UNKNOWN
     Route: 031
     Dates: start: 20210608
  5. EYLEA [Suspect]
     Active Substance: AFLIBERCEPT
     Dosage: UNKNOWN
     Route: 031
     Dates: start: 20210709
  6. EYLEA [Suspect]
     Active Substance: AFLIBERCEPT
     Dosage: UNKNOWN
     Route: 031
     Dates: start: 20210806
  7. EYLEA [Suspect]
     Active Substance: AFLIBERCEPT
     Dosage: UNKNOWN
     Route: 031
     Dates: start: 20210910
  8. EYLEA [Suspect]
     Active Substance: AFLIBERCEPT
     Dosage: UNKNOWN
     Route: 031
     Dates: start: 20211025
  9. EYLEA [Suspect]
     Active Substance: AFLIBERCEPT
     Dosage: UNKNOWN
     Route: 031
     Dates: start: 20211206
  10. EYLEA [Suspect]
     Active Substance: AFLIBERCEPT
     Dosage: UNKNOWN
     Route: 031
     Dates: start: 20220110
  11. EYLEA [Suspect]
     Active Substance: AFLIBERCEPT
     Dosage: UNKNOWN
     Route: 031
     Dates: start: 20220207
  12. EYLEA [Suspect]
     Active Substance: AFLIBERCEPT
     Dosage: UNKNOWN
     Route: 031
     Dates: start: 20220308
  13. EYLEA [Suspect]
     Active Substance: AFLIBERCEPT
     Dosage: UNKNOWN
     Route: 031
     Dates: start: 20220405
  14. EYLEA [Suspect]
     Active Substance: AFLIBERCEPT
     Dosage: UNKNOWN
     Route: 031
     Dates: start: 20220503
  15. EYLEA [Suspect]
     Active Substance: AFLIBERCEPT
     Dosage: UNKNOWN
     Route: 031
     Dates: start: 20220614

REACTIONS (3)
  - Cataract [Unknown]
  - Cataract operation [Recovered/Resolved]
  - Visual acuity reduced [Unknown]

NARRATIVE: CASE EVENT DATE: 20210608
